FAERS Safety Report 5633329-X (Version None)
Quarter: 2008Q1

REPORT INFORMATION
  Report Type: 
  Country: None (occurrence: None)
  Receive Date: 20080221
  Receipt Date: 20080211
  Transmission Date: 20080703
  Serious: Yes (Hospitalization)
  Sender: FDA-Public Use
  Company Number: DE-PFIZER INC-2008013101

PATIENT
  Age: 50 Year
  Sex: Female
  Weight: 90 kg

DRUGS (3)
  1. ZOLOFT [Suspect]
     Indication: DEPRESSION
     Dosage: DAILY DOSE:150MG
     Route: 048
     Dates: start: 20070912, end: 20071119
  2. DOGMATIL [Interacting]
     Indication: DEPRESSION
     Dosage: DAILY DOSE:200MG
     Route: 048
     Dates: start: 20070911, end: 20071126
  3. EUTHYROX [Concomitant]
     Dosage: DAILY DOSE:175MG
     Route: 048

REACTIONS (3)
  - DIARRHOEA [None]
  - DRUG INTERACTION [None]
  - NAUSEA [None]
